FAERS Safety Report 25836374 (Version 1)
Quarter: 2025Q3

REPORT INFORMATION
  Report Type: Spontaneous
  Country: US (occurrence: None)
  Receive Date: 20250922
  Receipt Date: 20250922
  Transmission Date: 20251021
  Serious: Yes (Hospitalization)
  Sender: FDA-CTU
  Company Number: None

PATIENT
  Age: 62 Year
  Sex: Male

DRUGS (10)
  1. LENALIDOMIDE [Suspect]
     Active Substance: LENALIDOMIDE
     Indication: Plasma cell myeloma
     Dosage: FREQUENCY : DAILY;?
     Route: 048
     Dates: start: 20250415
  2. DARZALEX SOL 100/SML [Concomitant]
  3. FLUDEOXYGLUC INJ F 18 [Concomitant]
  4. METHOCARBAM TAB 500MG [Concomitant]
  5. MONTELUKAST SODIUM [Concomitant]
     Active Substance: MONTELUKAST SODIUM
  6. ONDANSETRON [Concomitant]
     Active Substance: ONDANSETRON
  7. OXYCODONE TAB 15MG [Concomitant]
  8. PROCHLORPER TAB 10MG [Concomitant]
  9. REVLIMID [Concomitant]
     Active Substance: LENALIDOMIDE
  10. VELCADE [Concomitant]
     Active Substance: BORTEZOMIB

REACTIONS (2)
  - Therapy interrupted [None]
  - Hospitalisation [None]

NARRATIVE: CASE EVENT DATE: 20250501
